FAERS Safety Report 5657097-0 (Version None)
Quarter: 2008Q1

REPORT INFORMATION
  Report Type: 
  Country: None (occurrence: None)
  Receive Date: 20080310
  Receipt Date: 20080229
  Transmission Date: 20080703
  Serious: Yes (Other)
  Sender: FDA-Public Use
  Company Number: US-JNJFOC-20080300331

PATIENT
  Age: 75 Year
  Sex: Female
  Weight: 77.11 kg

DRUGS (7)
  1. IMODIUM A-D CREAMY MINT [Suspect]
  2. IMODIUM A-D CREAMY MINT [Suspect]
     Indication: DIARRHOEA
  3. NEURONTIN [Concomitant]
     Indication: MUSCLE SPASMS
  4. LIBRIUM [Concomitant]
     Indication: NERVOUSNESS
     Dosage: AT NIGHT
  5. MAXZIDE [Concomitant]
     Indication: DIURETIC THERAPY
  6. ATENOLOL [Concomitant]
     Indication: HYPERTENSION
  7. EFFEXOR [Concomitant]
     Indication: ANTIDEPRESSANT THERAPY

REACTIONS (3)
  - NERVOUSNESS [None]
  - THYROID DISORDER [None]
  - TREMOR [None]
